FAERS Safety Report 13256505 (Version 8)
Quarter: 2017Q2

REPORT INFORMATION
  Report Type: Spontaneous
  Country: CH (occurrence: CH)
  Receive Date: 20170221
  Receipt Date: 20170403
  Transmission Date: 20170830
  Serious: Yes (Hospitalization, Other)
  Sender: FDA-Public Use
  Company Number: CH-PFIZER INC-2017075139

PATIENT
  Age: 63 Year
  Sex: Male

DRUGS (13)
  1. CORDARONE [Interacting]
     Active Substance: AMIODARONE HYDROCHLORIDE
     Dosage: 200 MG, DAILY (MAINTENANCE DOSE)
     Route: 048
     Dates: start: 20170127
  2. TRIATEC /00116401/ [Concomitant]
     Active Substance: ACETAMINOPHEN\CODEINE PHOSPHATE
     Dosage: 3.75 MG, DAILY
     Route: 065
  3. ALDACTONE [Concomitant]
     Active Substance: SPIRONOLACTONE
     Dosage: 50 MG, DAILY
     Route: 065
  4. TOREM /01036501/ [Concomitant]
     Active Substance: TORSEMIDE
     Dosage: 5 MG, DAILY
     Route: 065
  5. NICOTINELL [Concomitant]
     Active Substance: NICOTINE
     Dosage: 1 DF, DAILY (1 STRONG MATRIX PATCH 21 MG/24H)
     Route: 065
  6. ELIQUIS [Interacting]
     Active Substance: APIXABAN
     Indication: CEREBROVASCULAR ACCIDENT PROPHYLAXIS
     Dosage: 2.5 MG, 2X/DAY
     Route: 048
     Dates: start: 20170119, end: 20170131
  7. CORDARONE [Suspect]
     Active Substance: AMIODARONE HYDROCHLORIDE
     Indication: ATRIAL FIBRILLATION
     Dosage: UNK UNK, DAILY (LOADING DOSE)
     Route: 048
     Dates: start: 20170112, end: 20170126
  8. PLAVIX [Interacting]
     Active Substance: CLOPIDOGREL BISULFATE
     Indication: CORONARY ARTERY DISEASE
     Dosage: 75 MG, 1X/DAY
     Route: 048
  9. CONCOR [Concomitant]
     Active Substance: BISOPROLOL FUMARATE
     Dosage: 1.25 MG, DAILY
     Route: 065
  10. CRESTOR [Concomitant]
     Active Substance: ROSUVASTATIN CALCIUM
     Dosage: 10 MG, DAILY
     Route: 065
  11. PANTOZOL [Concomitant]
     Active Substance: PANTOPRAZOLE SODIUM
     Dosage: 40 MG, DAILY
     Route: 065
  12. ASPIRIN CARDIO [Interacting]
     Active Substance: ASPIRIN
     Indication: CORONARY ARTERY DISEASE
     Dosage: 100 MG, DAILY
     Route: 048
  13. AMLODIPIN /00972401/ [Concomitant]
     Active Substance: AMLODIPINE BESYLATE
     Dosage: 10 MG, DAILY
     Route: 065

REACTIONS (7)
  - Potentiating drug interaction [Recovered/Resolved]
  - Melaena [Recovered/Resolved]
  - Contraindicated product administered [Unknown]
  - Haemorrhagic anaemia [Recovering/Resolving]
  - Inhibitory drug interaction [Recovered/Resolved]
  - Large intestine polyp [Unknown]
  - Acute kidney injury [Recovered/Resolved]

NARRATIVE: CASE EVENT DATE: 20170119
